FAERS Safety Report 5113845-X (Version None)
Quarter: 2006Q3

REPORT INFORMATION
  Report Type: 
  Country: None (occurrence: None)
  Receive Date: 20060921
  Receipt Date: 20060913
  Transmission Date: 20061208
  Serious: Yes (Other)
  Sender: FDA-Public Use
  Company Number: 008582

PATIENT
  Age: 11 Week

DRUGS (1)
  1. ERRIN [Suspect]
     Indication: ORAL CONTRACEPTION
     Dosage: TRANSMAMMARY
     Route: 063
     Dates: start: 20060818

REACTIONS (2)
  - DRUG EXPOSURE VIA BREAST MILK [None]
  - HAEMATOCHEZIA [None]
